FAERS Safety Report 7285845-5 (Version None)
Quarter: 2011Q1

REPORT INFORMATION
  Report Type: 
  Country: None (occurrence: None)
  Receive Date: 20110210
  Receipt Date: 20110201
  Transmission Date: 20110831
  Serious: Yes (Other)
  Sender: FDA-Public Use
  Company Number: JP-BRISTOL-MYERS SQUIBB COMPANY-15519507

PATIENT
  Age: 47 Year
  Sex: Male

DRUGS (5)
  1. METGLUCO [Suspect]
     Indication: TYPE 2 DIABETES MELLITUS
     Dosage: 24NOV TO 07DEC2010(1000MG)(13D) 08DEC TO 24DEC2010(1500MG)(16D)
     Route: 048
     Dates: start: 20101124, end: 20101224
  2. ACTOS [Concomitant]
  3. SITAGLIPTIN PHOSPHATE [Concomitant]
     Dates: start: 20100101, end: 20101027
  4. AMARYL [Concomitant]
     Route: 048
  5. MELBIN [Concomitant]

REACTIONS (1)
  - RHABDOMYOLYSIS [None]
